FAERS Safety Report 9119597 (Version 1)
Quarter: 2013Q1

REPORT INFORMATION
  Report Type: Spontaneous
  Country: US (occurrence: US)
  Receive Date: 20130207
  Receipt Date: 20130207
  Transmission Date: 20140127
  Serious: Yes (Death)
  Sender: FDA-Public Use
  Company Number: US-INCYTE CORPORATION-2013IN000223

PATIENT
  Sex: 0

DRUGS (1)
  1. JAKAFI [Suspect]
     Indication: MYELOID METAPLASIA
     Dosage: ONE 10 MG TABLET WITH ONE 20 MG TABLET EVERY MORNING AND ONE 20 MG TABLET EVERY EVENING
     Route: 048
     Dates: start: 20120322

REACTIONS (1)
  - Death [Fatal]
